FAERS Safety Report 6089753-7 (Version None)
Quarter: 2009Q1

REPORT INFORMATION
  Report Type: 
  Country: None (occurrence: None)
  Receive Date: 20090220
  Receipt Date: 20090206
  Transmission Date: 20090719
  Serious: Yes (Hospitalization)
  Sender: FDA-Public Use
  Company Number: 231433K09USA

PATIENT
  Age: 39 Year
  Sex: Male
  Weight: 88 kg

DRUGS (3)
  1. REBIF [Suspect]
     Indication: MULTIPLE SCLEROSIS
     Dosage: 22 MCG, 3 IN 1, WEEKS, SUBCUTANEOUS
     Route: 058
     Dates: start: 20070629
  2. LIPITOR [Concomitant]
  3. NEURONTIN [Concomitant]

REACTIONS (10)
  - ATRIAL FIBRILLATION [None]
  - BUNDLE BRANCH BLOCK RIGHT [None]
  - CORONARY ARTERY STENOSIS [None]
  - DEEP VEIN THROMBOSIS [None]
  - HAEMATOMA [None]
  - HEADACHE [None]
  - LOSS OF CONSCIOUSNESS [None]
  - ORCHITIS [None]
  - VASCULAR PSEUDOANEURYSM RUPTURED [None]
  - VENTRICULAR EXTRASYSTOLES [None]
